FAERS Safety Report 18933329 (Version 3)
Quarter: 2021Q3

REPORT INFORMATION
  Report Type: Spontaneous
  Country: US (occurrence: US)
  Receive Date: 20210224
  Receipt Date: 20210826
  Transmission Date: 20211014
  Serious: Yes (Hospitalization, Other)
  Sender: FDA-Public Use
  Company Number: US-GILEAD-2021-0517962

PATIENT
  Sex: Female
  Weight: 82.99 kg

DRUGS (125)
  1. TRUVADA [Suspect]
     Active Substance: EMTRICITABINE\TENOFOVIR DISOPROXIL FUMARATE
     Dosage: UNK
     Route: 048
     Dates: start: 201506, end: 20160509
  2. ADVAIR HFA [Concomitant]
     Active Substance: FLUTICASONE PROPIONATE\SALMETEROL XINAFOATE
  3. BREO ELLIPTA [Concomitant]
     Active Substance: FLUTICASONE FUROATE\VILANTEROL TRIFENATATE
  4. BUSPIRONE [Concomitant]
     Active Substance: BUSPIRONE HYDROCHLORIDE
  5. BUTALBITAL/APAP [Concomitant]
     Active Substance: ACETAMINOPHEN\BUTALBITAL
  6. CARTIA XT [Concomitant]
     Active Substance: DILTIAZEM HYDROCHLORIDE
  7. CARVEDILOL. [Concomitant]
     Active Substance: CARVEDILOL
  8. DICLOFENAC [Concomitant]
     Active Substance: DICLOFENAC
  9. ELIQUIS [Concomitant]
     Active Substance: APIXABAN
  10. FLECAINIDE [Concomitant]
     Active Substance: FLECAINIDE
  11. METHYLPREDNISOLONE. [Concomitant]
     Active Substance: METHYLPREDNISOLONE
  12. NARCAN [Concomitant]
     Active Substance: NALOXONE HYDROCHLORIDE
  13. ONDANSETRON [Concomitant]
     Active Substance: ONDANSETRON
  14. PNEUMOVAX 23 [Concomitant]
     Active Substance: PNEUMOCOCCAL VACCINE, POLYVALENT 23
  15. ROZEREM [Concomitant]
     Active Substance: RAMELTEON
  16. TEMAZEPAM. [Concomitant]
     Active Substance: TEMAZEPAM
  17. TRAMADOL. [Concomitant]
     Active Substance: TRAMADOL
  18. TRELEGY ELLIPTA [Concomitant]
     Active Substance: FLUTICASONE FUROATE\UMECLIDINIUM BROMIDE\VILANTEROL TRIFENATATE
  19. VASCEPA [Concomitant]
     Active Substance: ICOSAPENT ETHYL
  20. VITAMIN D NOS [Concomitant]
     Active Substance: VITAMIN D NOS
  21. WARFARIN [Concomitant]
     Active Substance: WARFARIN
  22. BIKTARVY [Concomitant]
     Active Substance: BICTEGRAVIR SODIUM\EMTRICITABINE\TENOFOVIR ALAFENAMIDE FUMARATE
  23. ALBUTEROL [SALBUTAMOL] [Concomitant]
     Active Substance: ALBUTEROL
  24. CALCIPOTRIENE. [Concomitant]
     Active Substance: CALCIPOTRIENE
  25. DOXYCYCLINE. [Concomitant]
     Active Substance: DOXYCYCLINE
  26. ENOXAPARIN [Concomitant]
     Active Substance: ENOXAPARIN
  27. GABAPENTIN. [Concomitant]
     Active Substance: GABAPENTIN
  28. HYDROMORPHONE [Concomitant]
     Active Substance: HYDROMORPHONE
  29. KLOR?CON [Concomitant]
     Active Substance: POTASSIUM CHLORIDE
  30. LABETALOL [Concomitant]
     Active Substance: LABETALOL\LABETALOL HYDROCHLORIDE
  31. NEUPRO [Concomitant]
     Active Substance: ROTIGOTINE
  32. NORTRIPTYLINE [Concomitant]
     Active Substance: NORTRIPTYLINE
  33. OXYBUTYNIN. [Concomitant]
     Active Substance: OXYBUTYNIN CHLORIDE
  34. POTASSIUM CLORIDE 40 [Concomitant]
     Active Substance: POTASSIUM CHLORIDE
  35. PREDNISOLONE. [Concomitant]
     Active Substance: PREDNISOLONE
  36. PREDNISONE. [Concomitant]
     Active Substance: PREDNISONE
  37. PROMETHAZINE [Concomitant]
     Active Substance: PROMETHAZINE HYDROCHLORIDE
  38. SPIRIVA [Concomitant]
     Active Substance: TIOTROPIUM BROMIDE MONOHYDRATE
  39. SYMBICORT [Concomitant]
     Active Substance: BUDESONIDE\FORMOTEROL FUMARATE DIHYDRATE
  40. ZOLPIDEM [Concomitant]
     Active Substance: ZOLPIDEM TARTRATE
  41. TRUVADA [Suspect]
     Active Substance: EMTRICITABINE\TENOFOVIR DISOPROXIL FUMARATE
     Dosage: UNK
     Route: 048
     Dates: end: 201003
  42. DESCOVY [Concomitant]
     Active Substance: EMTRICITABINE\TENOFOVIR ALAFENAMIDE FUMARATE
  43. GENVOYA [Concomitant]
     Active Substance: COBICISTAT\ELVITEGRAVIR\EMTRICITABINE\TENOFOVIR ALAFENAMIDE FUMARATE
  44. TIVICAY [Concomitant]
     Active Substance: DOLUTEGRAVIR SODIUM
  45. ACYCLOVIR [ACICLOVIR] [Concomitant]
     Active Substance: ACYCLOVIR
  46. CIPROFLOXACIN. [Concomitant]
     Active Substance: CIPROFLOXACIN
  47. DULOXETINE. [Concomitant]
     Active Substance: DULOXETINE
  48. FLUTICASONE. [Concomitant]
     Active Substance: FLUTICASONE
  49. HYDROCODONE [Concomitant]
     Active Substance: HYDROCODONE
  50. LACTULOSE. [Concomitant]
     Active Substance: LACTULOSE
  51. LISINOPRIL. [Concomitant]
     Active Substance: LISINOPRIL
  52. OSELTAMIVIR [Concomitant]
     Active Substance: OSELTAMIVIR
  53. PANTOPRAZOLE [Concomitant]
     Active Substance: PANTOPRAZOLE
  54. PRAMIPEXOLE. [Concomitant]
     Active Substance: PRAMIPEXOLE
  55. SHINGRIX [Concomitant]
     Active Substance: RECOMBINANT VARICELLA ZOSTER VIRUS (VZV) GLYCOPROTEIN E
  56. SUCRALFATE. [Concomitant]
     Active Substance: SUCRALFATE
  57. SUMATRIPTAN. [Concomitant]
     Active Substance: SUMATRIPTAN
  58. VIREAD [Suspect]
     Active Substance: TENOFOVIR DISOPROXIL FUMARATE
     Indication: HIV INFECTION
     Dosage: UNK
     Route: 048
     Dates: start: 2003, end: 2006
  59. TRUVADA [Suspect]
     Active Substance: EMTRICITABINE\TENOFOVIR DISOPROXIL FUMARATE
     Dosage: UNK
     Route: 048
     Dates: start: 20100304, end: 20100502
  60. BENZONATATE. [Concomitant]
     Active Substance: BENZONATATE
  61. CEPHALEXIN [CEFALEXIN] [Concomitant]
     Active Substance: CEPHALEXIN
  62. INVIRASE [Concomitant]
     Active Substance: SAQUINAVIR MESYLATE
  63. LEVOTHYROXINE. [Concomitant]
     Active Substance: LEVOTHYROXINE
  64. MONTELUKAST [Concomitant]
     Active Substance: MONTELUKAST SODIUM
  65. SENNA ACUTIFOLIA [Concomitant]
  66. VENTOLIN [Concomitant]
     Active Substance: ALBUTEROL SULFATE
  67. VERAPAMIL [Concomitant]
     Active Substance: VERAPAMIL HYDROCHLORIDE
  68. TRUVADA [Suspect]
     Active Substance: EMTRICITABINE\TENOFOVIR DISOPROXIL FUMARATE
     Indication: HIV INFECTION
     Dosage: UNK
     Route: 048
     Dates: start: 2003
  69. TRUVADA [Suspect]
     Active Substance: EMTRICITABINE\TENOFOVIR DISOPROXIL FUMARATE
     Dosage: UNK
     Route: 048
     Dates: start: 20100504, end: 201408
  70. COLCHICINE. [Concomitant]
     Active Substance: COLCHICINE
  71. DOCQLACE [Concomitant]
     Active Substance: DOCUSATE SODIUM
  72. FUROSEMIDE. [Concomitant]
     Active Substance: FUROSEMIDE
  73. GAVILYTE ? C [Concomitant]
     Active Substance: POLYETHYLENE GLYCOL 3350\POTASSIUM CHLORIDE\SODIUM BICARBONATE\SODIUM CHLORIDE\SODIUM SULFATE
  74. HYDROXYZINE [Concomitant]
     Active Substance: HYDROXYZINE HYDROCHLORIDE
  75. NADOLOL. [Concomitant]
     Active Substance: NADOLOL
  76. NAPROXEN. [Concomitant]
     Active Substance: NAPROXEN
  77. POLYETHYLENE GLYCOL 3350. [Concomitant]
     Active Substance: POLYETHYLENE GLYCOL 3350
  78. TRUVADA [Suspect]
     Active Substance: EMTRICITABINE\TENOFOVIR DISOPROXIL FUMARATE
     Dosage: UNK
     Route: 048
     Dates: start: 20141201, end: 20150611
  79. TRUVADA [Suspect]
     Active Substance: EMTRICITABINE\TENOFOVIR DISOPROXIL FUMARATE
     Dosage: UNK
     Route: 048
     Dates: start: 201005, end: 201605
  80. KALETRA [Concomitant]
     Active Substance: LOPINAVIR\RITONAVIR
  81. BACLOFEN. [Concomitant]
     Active Substance: BACLOFEN
  82. CYCLOBENZAPRINE. [Concomitant]
     Active Substance: CYCLOBENZAPRINE
  83. DIPHENHYDRAMINE. [Concomitant]
     Active Substance: DIPHENHYDRAMINE
  84. DOXEPIN [Concomitant]
     Active Substance: DOXEPIN
  85. LIDOCAINE. [Concomitant]
     Active Substance: LIDOCAINE
  86. METOCLOPRAMIDE. [Concomitant]
     Active Substance: METOCLOPRAMIDE
  87. METOPROLOL. [Concomitant]
     Active Substance: METOPROLOL
  88. PROAIR BRONQUIAL [Concomitant]
  89. SINGULAIR [Concomitant]
     Active Substance: MONTELUKAST SODIUM
  90. SPIRONOLACTONE. [Concomitant]
     Active Substance: SPIRONOLACTONE
  91. TRAZODONE [Concomitant]
     Active Substance: TRAZODONE HYDROCHLORIDE
  92. TRUVADA [Suspect]
     Active Substance: EMTRICITABINE\TENOFOVIR DISOPROXIL FUMARATE
     Dosage: UNK
     Route: 048
     Dates: start: 20140830, end: 20141113
  93. AMOXICILLIN. [Concomitant]
     Active Substance: AMOXICILLIN
  94. AZITHROMYCIN ANHYDROUS. [Concomitant]
     Active Substance: AZITHROMYCIN ANHYDROUS
  95. CAPTOPRIL. [Concomitant]
     Active Substance: CAPTOPRIL
  96. DILTIAZEM. [Concomitant]
     Active Substance: DILTIAZEM
  97. LORATADINE. [Concomitant]
     Active Substance: LORATADINE
  98. LOVENOX HP [Concomitant]
     Active Substance: ENOXAPARIN SODIUM
  99. NITROFURANTOIN. [Concomitant]
     Active Substance: NITROFURANTOIN
  100. PHENAZOPYRIDIN HCL [Concomitant]
  101. PRAVASTATIN. [Concomitant]
     Active Substance: PRAVASTATIN
  102. PROCHLORPERAZINE. [Concomitant]
     Active Substance: PROCHLORPERAZINE
  103. RANITIDINE. [Concomitant]
     Active Substance: RANITIDINE
  104. SMZ (CO) [Concomitant]
  105. TOPIRAMATE. [Concomitant]
     Active Substance: TOPIRAMATE
  106. CALCITRIOL. [Concomitant]
     Active Substance: CALCITRIOL
  107. CARAFATE [Concomitant]
     Active Substance: SUCRALFATE
  108. CETIRIZINE [Concomitant]
     Active Substance: CETIRIZINE HYDROCHLORIDE
  109. CYMBALTA [Concomitant]
     Active Substance: DULOXETINE HYDROCHLORIDE
  110. DIVALPROEX [Concomitant]
     Active Substance: DIVALPROEX SODIUM
  111. FLUARIX NOS [Concomitant]
     Active Substance: INFLUENZA VIRUS VACCINE
  112. FLUCONAZOLE. [Concomitant]
     Active Substance: FLUCONAZOLE
  113. INDOMETHACIN [INDOMETACIN] [Concomitant]
     Active Substance: INDOMETHACIN
  114. IPRATROPIUM [Concomitant]
     Active Substance: IPRATROPIUM
  115. KETOCONAZOLE. [Concomitant]
     Active Substance: KETOCONAZOLE
  116. METHOCARBAMOL. [Concomitant]
     Active Substance: METHOCARBAMOL
  117. NYSTATIN. [Concomitant]
     Active Substance: NYSTATIN
  118. OMEPRAZOLE. [Concomitant]
     Active Substance: OMEPRAZOLE
  119. PREMARIN [Concomitant]
     Active Substance: ESTROGENS, CONJUGATED
  120. RESTASIS [Concomitant]
     Active Substance: CYCLOSPORINE
  121. ROXICET [Concomitant]
     Active Substance: ACETAMINOPHEN\OXYCODONE HYDROCHLORIDE
  122. TIZANIDINE. [Concomitant]
     Active Substance: TIZANIDINE
  123. TRIAMTERENE. [Concomitant]
     Active Substance: TRIAMTERENE
  124. UBRELVY [Concomitant]
     Active Substance: UBROGEPANT
  125. VOLTAREN ACTI [Concomitant]
     Active Substance: DICLOFENAC POTASSIUM

REACTIONS (8)
  - Osteoporosis [Not Recovered/Not Resolved]
  - End stage renal disease [Not Recovered/Not Resolved]
  - Multiple fractures [Not Recovered/Not Resolved]
  - Anxiety [Not Recovered/Not Resolved]
  - Pain [Not Recovered/Not Resolved]
  - Emotional distress [Not Recovered/Not Resolved]
  - Anhedonia [Not Recovered/Not Resolved]
  - Drug ineffective [Unknown]

NARRATIVE: CASE EVENT DATE: 2016
